FAERS Safety Report 17567848 (Version 1)
Quarter: 2020Q1

REPORT INFORMATION
  Report Type: Spontaneous
  Country: US (occurrence: US)
  Receive Date: 20200320
  Receipt Date: 20200320
  Transmission Date: 20200409
  Serious: Yes (Other)
  Sender: FDA-Public Use
  Company Number: US-009507513-2003USA005386

PATIENT
  Age: 29 Year
  Sex: Female

DRUGS (1)
  1. NEXPLANON [Suspect]
     Active Substance: ETONOGESTREL
     Dosage: 1 DOSAGE FORM, EVERY 3 YEARS
     Route: 059
     Dates: start: 20200312

REACTIONS (5)
  - Drug monitoring procedure incorrectly performed [Unknown]
  - Wrong technique in product usage process [Unknown]
  - Device dislocation [Not Recovered/Not Resolved]
  - Device expulsion [Recovered/Resolved]
  - Inadequate aseptic technique in use of product [Unknown]

NARRATIVE: CASE EVENT DATE: 20200312
